FAERS Safety Report 9524608 (Version 1)
Quarter: 2013Q3

REPORT INFORMATION
  Report Type: Spontaneous
  Country: US (occurrence: US)
  Receive Date: 20130916
  Receipt Date: 20130916
  Transmission Date: 20140515
  Serious: No
  Sender: FDA-Public Use
  Company Number: US-PFIZER INC-2013265650

PATIENT
  Age: 71 Year
  Sex: Female
  Weight: 83.45 kg

DRUGS (4)
  1. CABERGOLINE [Suspect]
     Indication: PITUITARY TUMOUR
     Dosage: UNK, WEEKLY
     Dates: start: 2007
  2. CABERGOLINE [Suspect]
     Dosage: UNK (INCREASED TO DOUBLE)
  3. CABERGOLINE [Suspect]
     Dosage: UNK (THEN TRIPLE)
  4. COUMADIN [Concomitant]
     Indication: FACTOR II DEFICIENCY
     Dosage: UNK

REACTIONS (1)
  - Drug ineffective [Unknown]
